FAERS Safety Report 8050098-7 (Version None)
Quarter: 2012Q1

REPORT INFORMATION
  Report Type: 
  Country: None (occurrence: None)
  Receive Date: 20120111
  Receipt Date: 20101020
  Transmission Date: 20120608
  Serious: No
  Sender: FDA-Public Use
  Company Number: 2010-06056

PATIENT
  Age: 25 Year
  Sex: Female

DRUGS (1)
  1. TUBERSOL [Suspect]
     Indication: ACCIDENTAL EXPOSURE
     Dosage: OTH.
     Route: 050
     Dates: start: 20101020, end: 20101020

REACTIONS (2)
  - OCULAR HYPERAEMIA [None]
  - ACCIDENTAL EXPOSURE [None]
